FAERS Safety Report 9230290 (Version 1)
Quarter: 2013Q2

REPORT INFORMATION
  Report Type: Spontaneous
  Country: US (occurrence: None)
  Receive Date: 20130411
  Receipt Date: 20130411
  Transmission Date: 20140414
  Serious: Yes (Death)
  Sender: FDA-Public Use
  Company Number: NSR_01096_2013

PATIENT
  Age: 36 Year
  Sex: Male

DRUGS (10)
  1. TRAMADOL HCL [Suspect]
     Indication: DEPRESSION
     Dosage: (27 DF, 1X LIKELY INGESTED 27 TABLETS [NOT THE PRESCRIBED DOSE]), (DF)
  2. ETHANOL [Suspect]
     Indication: PRODUCT USED FOR UNKNOWN INDICATION
  3. FORMIC ACID [Suspect]
     Indication: PRODUCT USED FOR UNKNOWN INDICATION
  4. METHYLPHENIDATE [Suspect]
     Indication: PRODUCT USED FOR UNKNOWN INDICATION
  5. METHYLPHENIDATE [Suspect]
     Indication: PRODUCT USED FOR UNKNOWN INDICATION
  6. DEXTROAMPHETAMINE [Suspect]
  7. AMPHETAMINE [Suspect]
     Indication: PRODUCT USED FOR UNKNOWN INDICATION
  8. TRAMADOL [Suspect]
  9. PAROXETINE [Concomitant]
  10. TRAZODONE [Concomitant]

REACTIONS (14)
  - Skin discolouration [None]
  - Excoriation [None]
  - Chemical injury [None]
  - Arteriosclerosis [None]
  - Dilatation ventricular [None]
  - Hepatic steatosis [None]
  - Drug screen positive [None]
  - Drug screen positive [None]
  - Toxicity to various agents [None]
  - Asphyxia [None]
  - Hyperthermia [None]
  - Completed suicide [None]
  - Drug level increased [None]
  - Intentional overdose [None]
